FAERS Safety Report 6662080-2 (Version None)
Quarter: 2010Q1

REPORT INFORMATION
  Report Type: 
  Country: None (occurrence: None)
  Receive Date: 20100331
  Receipt Date: 20100319
  Transmission Date: 20100710
  Serious: Yes (Other)
  Sender: FDA-Public Use
  Company Number: US-PFIZER INC-2010035904

PATIENT
  Sex: Female
  Weight: 47.619 kg

DRUGS (6)
  1. LYRICA [Suspect]
     Indication: FIBROMYALGIA
     Dosage: 200 MG, 1X/DAY
     Route: 048
     Dates: start: 20080801
  2. ZOLOFT [Concomitant]
     Indication: BIPOLAR DISORDER
     Dosage: 200 MG, 1X/DAY
     Route: 048
     Dates: start: 19960101
  3. ESTRADIOL [Concomitant]
     Indication: HYSTERECTOMY
     Dosage: 1 MG, 1X/DAY
     Route: 048
  4. CLONAZEPAM [Concomitant]
     Indication: BIPOLAR DISORDER
     Dosage: 1 MG, 2X/DAY
     Route: 048
  5. GEODON [Concomitant]
     Indication: BIPOLAR DISORDER
     Dosage: 20 MG, 2X/DAY
     Route: 048
  6. HYDROMORPHONE [Concomitant]
     Indication: FIBROMYALGIA
     Dosage: 4 MG, 2X/DAY
     Route: 048

REACTIONS (2)
  - MOOD SWINGS [None]
  - WEIGHT INCREASED [None]
